FAERS Safety Report 18876996 (Version 2)
Quarter: 2021Q3

REPORT INFORMATION
  Report Type: Report from Study
  Country: JP (occurrence: JP)
  Receive Date: 20210211
  Receipt Date: 20210901
  Transmission Date: 20211014
  Serious: Yes (Other)
  Sender: FDA-Public Use
  Company Number: JP-CELLTRION INC.-2021JP001557

PATIENT

DRUGS (8)
  1. CT?P13 [Suspect]
     Active Substance: INFLIXIMAB-DYYB
     Dosage: 285 MG
     Route: 041
     Dates: start: 20201115, end: 20201115
  2. MESALAZINE (MESALAZINE) [Concomitant]
     Active Substance: MESALAMINE
     Dosage: 4000 MG, DAILY
     Route: 048
     Dates: start: 20170826, end: 20200708
  3. CT?P13 [Suspect]
     Active Substance: INFLIXIMAB-DYYB
     Dosage: 280 MG
     Route: 041
     Dates: start: 20190119, end: 20190119
  4. CT?P13 [Suspect]
     Active Substance: INFLIXIMAB-DYYB
     Dosage: 280 MG
     Route: 041
     Dates: start: 20190313, end: 20190313
  5. CT?P13 [Suspect]
     Active Substance: INFLIXIMAB-DYYB
     Dosage: 285 MG
     Route: 041
     Dates: start: 20190502, end: 20190502
  6. CT?P13 [Suspect]
     Active Substance: INFLIXIMAB-DYYB
     Indication: COLITIS ULCERATIVE
     Dosage: 270 MG
     Route: 041
     Dates: start: 20181115, end: 20181115
  7. CT?P13 [Suspect]
     Active Substance: INFLIXIMAB-DYYB
     Dosage: 290 MG
     Route: 041
     Dates: start: 20191103, end: 20191103
  8. MESALAZINE (MESALAZINE) [Concomitant]
     Active Substance: MESALAMINE
     Dosage: 2400 MG, DAILY
     Route: 048
     Dates: start: 20170513, end: 20200526

REACTIONS (5)
  - Gastritis [Not Recovered/Not Resolved]
  - Tonsillitis [Recovered/Resolved]
  - IgA nephropathy [Not Recovered/Not Resolved]
  - Pancreatitis acute [Recovered/Resolved]
  - Off label use [Unknown]

NARRATIVE: CASE EVENT DATE: 20200614
